FAERS Safety Report 8059877-3 (Version None)
Quarter: 2012Q1

REPORT INFORMATION
  Report Type: 
  Country: None (occurrence: None)
  Receive Date: 20120120
  Receipt Date: 20120109
  Transmission Date: 20120608
  Serious: Yes (Death, Life-Threatening, Hospitalization, Other)
  Sender: FDA-Public Use
  Company Number: FR-TEVA-2011003486

PATIENT
  Sex: Male
  Weight: 75 kg

DRUGS (2)
  1. RITUXIMAB [Suspect]
     Route: 042
     Dates: start: 20110511, end: 20110511
  2. BENDAMUSTINE [Suspect]
     Route: 041
     Dates: start: 20110511, end: 20110512

REACTIONS (2)
  - SEPTIC SHOCK [None]
  - FEBRILE BONE MARROW APLASIA [None]
